FAERS Safety Report 20039129 (Version 2)
Quarter: 2021Q4

REPORT INFORMATION
  Report Type: Other
  Country: KZ (occurrence: KZ)
  Receive Date: 20211105
  Receipt Date: 20211116
  Transmission Date: 20220303
  Serious: Yes (Death)
  Sender: FDA-Public Use
  Company Number: KZ-PIERREL PHARMA S.P.A.-2021PIR00038

PATIENT
  Age: 22 Year
  Sex: Female

DRUGS (2)
  1. ARTICAINE\EPINEPHRINE [Suspect]
     Active Substance: ARTICAINE\EPINEPHRINE
  2. ARTICAINE\EPINEPHRINE [Suspect]
     Active Substance: ARTICAINE\EPINEPHRINE

REACTIONS (2)
  - Anaphylactic shock [Fatal]
  - Type IV hypersensitivity reaction [Fatal]
